FAERS Safety Report 10752028 (Version 3)
Quarter: 2015Q1

REPORT INFORMATION
  Report Type: Spontaneous
  Country: ET (occurrence: ET)
  Receive Date: 20150130
  Receipt Date: 20150213
  Transmission Date: 20150721
  Serious: Yes (Death, Other)
  Sender: FDA-Public Use
  Company Number: ET-PFIZER INC-2015035997

PATIENT
  Age: 60 Year
  Sex: Male

DRUGS (1)
  1. ZITHROMAX [Suspect]
     Active Substance: AZITHROMYCIN DIHYDRATE
     Indication: TRACHOMA
     Dosage: 4 TABLETS
     Dates: start: 20150126

REACTIONS (1)
  - Death [Fatal]

NARRATIVE: CASE EVENT DATE: 20150126
